FAERS Safety Report 22332597 (Version 1)
Quarter: 2023Q2

REPORT INFORMATION
  Report Type: Other
  Country: PL (occurrence: PL)
  Receive Date: 20230517
  Receipt Date: 20230517
  Transmission Date: 20230722
  Serious: Yes (Hospitalization)
  Sender: FDA-Public Use
  Company Number: PL-CELLTRION HEALTHCARE HUNGARY KFT-2022PL010356

PATIENT
  Age: 78 Year
  Sex: Female
  Weight: 52 kg

DRUGS (5)
  1. BENDAMUSTINE [Suspect]
     Active Substance: BENDAMUSTINE
     Indication: Neoplasm malignant
     Dosage: 90 MG/M2, MONTHLY (1/M) (EVERY FOUR WEEKS)
     Route: 065
     Dates: start: 20220428, end: 20220428
  2. BENDAMUSTINE [Suspect]
     Active Substance: BENDAMUSTINE
     Dosage: 90 MG/M2, MONTHLY (1/M) (EVERY FOUR WEEKS)
     Route: 065
     Dates: start: 20220429, end: 20220429
  3. RITUXIMAB [Suspect]
     Active Substance: RITUXIMAB
     Indication: Chronic lymphocytic leukaemia
     Dosage: 375 MG/M2 (570 MG), MONTHLY (1/M) (EVERY 4 WEEKS)
     Route: 041
     Dates: start: 20220428, end: 20220428
  4. EGIRAMLON [Concomitant]
     Dosage: UNK
     Dates: start: 2021
  5. EZEHRON [Concomitant]
     Indication: Hypertension
     Dosage: UNK
     Dates: start: 2021

REACTIONS (2)
  - Hyperuricaemia [Recovered/Resolved]
  - Blood calcium decreased [Unknown]

NARRATIVE: CASE EVENT DATE: 20220430
